FAERS Safety Report 7906786-3 (Version None)
Quarter: 2011Q4

REPORT INFORMATION
  Report Type: 
  Country: None (occurrence: None)
  Receive Date: 20111110
  Receipt Date: 20111107
  Transmission Date: 20120403
  Serious: Yes (Death, Other)
  Sender: FDA-Public Use
  Company Number: CA-TEVA-308389USA

PATIENT
  Age: 15 Month
  Sex: Male

DRUGS (2)
  1. THIOTEPA [Suspect]
     Indication: BRAIN NEOPLASM MALIGNANT
  2. CARBOPLATIN [Suspect]
     Indication: BRAIN NEOPLASM MALIGNANT

REACTIONS (2)
  - LEUKOENCEPHALOPATHY [None]
  - ASPIRATION [None]
